FAERS Safety Report 9578131 (Version 1)
Quarter: 2013Q4

REPORT INFORMATION
  Report Type: Spontaneous
  Country: US (occurrence: US)
  Receive Date: 20131001
  Receipt Date: 20131001
  Transmission Date: 20140711
  Serious: No
  Sender: FDA-Public Use
  Company Number: US-AMGEN-USASP2013011779

PATIENT
  Age: 60 Year
  Sex: Female
  Weight: 102.4 kg

DRUGS (1)
  1. ENBREL [Suspect]
     Indication: RHEUMATOID ARTHRITIS
     Dosage: 50 MG, QWK
     Route: 058
     Dates: start: 20040101

REACTIONS (5)
  - Local swelling [Unknown]
  - Feeling hot [Unknown]
  - Pain [Unknown]
  - Red blood cell sedimentation rate abnormal [Unknown]
  - Sinusitis [Unknown]
